FAERS Safety Report 8671199 (Version 3)
Quarter: 2012Q4

REPORT INFORMATION
  Report Type: Report from Study
  Country: JP (occurrence: JP)
  Receive Date: 20120718
  Receipt Date: 20120928
  Transmission Date: 20130627
  Serious: Yes (Hospitalization)
  Sender: FDA-Public Use
  Company Number: JP-B.I. PHARMACEUTICALS,INC./RIDGEFIELD-2012-BP-15550NB

PATIENT
  Age: 82 Year
  Sex: Female
  Weight: 43.2 kg

DRUGS (4)
  1. PRAZAXA [Suspect]
     Indication: THROMBOSIS PROPHYLAXIS
     Dosage: 220 mg
     Route: 048
     Dates: start: 20120319
  2. LUPRAC [Concomitant]
     Dosage: 8 mg
     Route: 048
  3. BLOPRESS [Concomitant]
     Dosage: 8 mg
     Route: 048
  4. HALFDIGOXIN [Concomitant]
     Dosage: 0.125 mg
     Route: 048

REACTIONS (1)
  - Cerebral infarction [Recovered/Resolved]
